FAERS Safety Report 25392764 (Version 1)
Quarter: 2025Q2

REPORT INFORMATION
  Report Type: Report from Study
  Country: CA (occurrence: CA)
  Receive Date: 20250603
  Receipt Date: 20250603
  Transmission Date: 20250716
  Serious: Yes (Other)
  Sender: ABBVIE
  Company Number: CA-ABBVIE-6303633

PATIENT
  Age: 72 Year
  Sex: Female

DRUGS (3)
  1. VENCLEXTA [Suspect]
     Active Substance: VENETOCLAX
     Indication: Acute myeloid leukaemia
     Dosage: 2 TAB ONCE DAILY FOR 7 DAYS?FORM STRENGTH-100 MG
     Route: 048
     Dates: start: 20250212, end: 20250218
  2. VENCLEXTA [Suspect]
     Active Substance: VENETOCLAX
     Indication: Acute myeloid leukaemia
     Dosage: 4 TAB ONCE DAILY 21 DAYS EVERY CYCLE?FORM STRENGTH-100 MG
     Route: 048
     Dates: start: 20250218
  3. AZACITIDINE [Concomitant]
     Active Substance: AZACITIDINE
     Indication: Product used for unknown indication

REACTIONS (2)
  - Platelet transfusion [Unknown]
  - Transfusion [Unknown]

NARRATIVE: CASE EVENT DATE: 20250101
